FAERS Safety Report 8370171-3 (Version None)
Quarter: 2012Q2

REPORT INFORMATION
  Report Type: 
  Country: None (occurrence: None)
  Receive Date: 20120518
  Receipt Date: 20120508
  Transmission Date: 20120825
  Serious: Yes (Hospitalization, Other)
  Sender: FDA-Public Use
  Company Number: US-VERTEX PHARMACEUTICALS INC.-AE-2012-006565

PATIENT
  Age: 49 Year
  Sex: Male

DRUGS (5)
  1. RIBAVIRIN [Concomitant]
     Dates: start: 20120404, end: 20120416
  2. PEGASYS [Concomitant]
     Dates: start: 20120305, end: 20120416
  3. PEGASYS [Concomitant]
     Indication: HEPATITIS C
     Dates: start: 20120213, end: 20120305
  4. INCIVEK [Suspect]
     Indication: HEPATITIS C
     Dates: start: 20120213, end: 20120330
  5. RIBAVIRIN [Concomitant]
     Indication: HEPATITIS C
     Route: 048
     Dates: start: 20120213, end: 20120404

REACTIONS (3)
  - SUPERINFECTION BACTERIAL [None]
  - DRUG RASH WITH EOSINOPHILIA AND SYSTEMIC SYMPTOMS [None]
  - PLATELET COUNT DECREASED [None]
